FAERS Safety Report 10838452 (Version 1)
Quarter: 2015Q1

REPORT INFORMATION
  Report Type: Report from Study
  Country: US (occurrence: US)
  Receive Date: 20150219
  Receipt Date: 20150219
  Transmission Date: 20150721
  Serious: No
  Sender: FDA-Public Use
  Company Number: US-ABBVIE-14P-163-1229472-00

PATIENT
  Sex: Female
  Weight: 56.75 kg

DRUGS (3)
  1. VITAMINS NOS [Concomitant]
     Active Substance: VITAMINS
     Indication: PRODUCT USED FOR UNKNOWN INDICATION
  2. HUMIRA [Suspect]
     Active Substance: ADALIMUMAB
     Indication: PSORIASIS
     Dates: start: 2013, end: 2013
  3. HUMIRA [Suspect]
     Active Substance: ADALIMUMAB
     Dosage: 4-5 DOSES
     Dates: start: 2013, end: 2013

REACTIONS (7)
  - Psoriasis [Not Recovered/Not Resolved]
  - Back pain [Unknown]
  - Fall [Recovered/Resolved]
  - Intervertebral disc protrusion [Unknown]
  - Bronchitis [Recovered/Resolved]
  - Drug ineffective [Not Recovered/Not Resolved]
  - Psoriasis [Unknown]

NARRATIVE: CASE EVENT DATE: 2013
